FAERS Safety Report 6056373-X (Version None)
Quarter: 2009Q1

REPORT INFORMATION
  Report Type: 
  Country: None (occurrence: None)
  Receive Date: 20090129
  Receipt Date: 20090120
  Transmission Date: 20090719
  Serious: Yes (Hospitalization)
  Sender: FDA-Public Use
  Company Number: TW-WATSON-2009-00312

PATIENT
  Age: 45 Year
  Sex: Male

DRUGS (1)
  1. METHYLPREDNISOLONE ACETATE [Suspect]
     Indication: TRANSPLANT REJECTION
     Dosage: 10 MG/KG/D
     Route: 042

REACTIONS (1)
  - CARDIAC ARREST [None]
